FAERS Safety Report 24401644 (Version 2)
Quarter: 2025Q3

REPORT INFORMATION
  Report Type: Spontaneous
  Country: US (occurrence: US)
  Receive Date: 20241007
  Receipt Date: 20250916
  Transmission Date: 20251020
  Serious: No
  Sender: ROCHE
  Company Number: US-ROCHE-10000091902

PATIENT
  Age: 40 Year
  Sex: Male

DRUGS (1)
  1. ERIVEDGE [Suspect]
     Active Substance: VISMODEGIB
     Indication: Congenital anomaly
     Dosage: STRENGTH: 150 MG
     Route: 048
     Dates: start: 202408

REACTIONS (6)
  - Off label use [Unknown]
  - Taste disorder [Unknown]
  - Folliculitis [Unknown]
  - Diarrhoea [Unknown]
  - Myalgia [Unknown]
  - Ageusia [Unknown]

NARRATIVE: CASE EVENT DATE: 20240901
